FAERS Safety Report 16823137 (Version 1)
Quarter: 2019Q3

REPORT INFORMATION
  Report Type: Spontaneous
  Country: US (occurrence: US)
  Receive Date: 20190918
  Receipt Date: 20190918
  Transmission Date: 20191005
  Serious: Yes (Hospitalization, Other)
  Sender: FDA-Public Use
  Company Number: US-SA-2019SA257398

PATIENT
  Age: 66 Year
  Sex: Male

DRUGS (1)
  1. LANTUS SOLOSTAR [Suspect]
     Active Substance: INSULIN GLARGINE
     Indication: TYPE 2 DIABETES MELLITUS
     Dosage: 30 U, QD (STARTED ON THE VIALS SEP2018 AND SWITCHED TO THE SOLOSTAR PEN IN DEC-2018)
     Route: 058
     Dates: start: 201809

REACTIONS (3)
  - Myocardial infarction [Recovered/Resolved]
  - Product dose omission [Unknown]
  - Device operational issue [Unknown]
